FAERS Safety Report 4961008-0 (Version None)
Quarter: 2006Q2

REPORT INFORMATION
  Report Type: 
  Country: None (occurrence: None)
  Receive Date: 20060403
  Receipt Date: 20060321
  Transmission Date: 20061013
  Serious: Yes (Disabling, Other)
  Sender: FDA-Public Use
  Company Number: 2006AC00555

PATIENT
  Age: 70 Year
  Sex: Male

DRUGS (8)
  1. ELAVIL [Suspect]
     Indication: DEPRESSION
     Route: 048
  2. ELAVIL [Suspect]
     Route: 048
  3. ELAVIL [Suspect]
     Route: 048
  4. IPRATROPIUM BROMIDE [Concomitant]
     Indication: CHRONIC OBSTRUCTIVE PULMONARY DISEASE
     Route: 055
  5. ALBUTEROL [Concomitant]
     Indication: CHRONIC OBSTRUCTIVE PULMONARY DISEASE
     Route: 055
  6. ALBUTEROL [Concomitant]
     Route: 055
  7. SPIRIVA [Concomitant]
     Indication: CHRONIC OBSTRUCTIVE PULMONARY DISEASE
     Dosage: 1 CAPSULE DAILY, INHALED
     Route: 055
  8. ADVAIR DISKUS 100/50 [Concomitant]
     Indication: CHRONIC OBSTRUCTIVE PULMONARY DISEASE
     Dosage: 100/50 MICROGRAM
     Route: 055

REACTIONS (10)
  - CHRONIC OBSTRUCTIVE PULMONARY DISEASE [None]
  - CONDITION AGGRAVATED [None]
  - CONFUSIONAL STATE [None]
  - CONSTIPATION [None]
  - DEPRESSION [None]
  - FALL [None]
  - FEELING ABNORMAL [None]
  - FRACTURE [None]
  - ORTHOSTATIC HYPOTENSION [None]
  - SEDATION [None]
